FAERS Safety Report 5614287-0 (Version None)
Quarter: 2008Q1

REPORT INFORMATION
  Report Type: 
  Country: None (occurrence: None)
  Receive Date: 20080205
  Receipt Date: 20080123
  Transmission Date: 20080703
  Serious: Yes (Hospitalization)
  Sender: FDA-Public Use
  Company Number: DE-GENENTECH-255214

PATIENT
  Sex: Female
  Weight: 78.005 kg

DRUGS (5)
  1. HERCEPTIN [Suspect]
     Indication: BREAST CANCER METASTATIC
     Dosage: 150 MG, 1/WEEK
     Route: 042
     Dates: start: 20070706, end: 20071022
  2. HERCEPTIN [Suspect]
     Dosage: 450 MG, Q3W
     Route: 042
     Dates: start: 20071022
  3. TAXOTERE [Suspect]
     Indication: BREAST CANCER METASTATIC
     Dosage: 190 MG, SINGLE
     Route: 042
     Dates: start: 20070713
  4. TAXOTERE [Suspect]
     Dosage: 140 MG, SINGLE
     Route: 042
     Dates: start: 20070810
  5. TAXOTERE [Suspect]
     Dosage: 140 MG, UNK
     Route: 042
     Dates: start: 20071022

REACTIONS (3)
  - DISEASE PROGRESSION [None]
  - PNEUMONIA PRIMARY ATYPICAL [None]
  - PNEUMONITIS [None]
